FAERS Safety Report 5334145-9 (Version None)
Quarter: 2007Q2

REPORT INFORMATION
  Report Type: 
  Country: None (occurrence: None)
  Receive Date: 20070522
  Receipt Date: 20070514
  Transmission Date: 20071010
  Serious: Yes (Life-Threatening, Hospitalization)
  Sender: FDA-Public Use
  Company Number: 340006M07FRA

PATIENT
  Age: 31 Year
  Sex: Female
  Weight: 55 kg

DRUGS (5)
  1. OVIDREL [Suspect]
     Indication: IN VITRO FERTILISATION
     Dosage: 250 MG, ONCE, SUBCUTANEOUS
     Route: 058
     Dates: start: 20070120, end: 20070120
  2. PUREGON (FOLLITROPIN BETA) [Suspect]
     Indication: IN VITRO FERTILISATION
     Dosage: SEE IMAGE
     Dates: start: 20070111, end: 20070119
  3. ORGALUTRAN (GANIRELIX) [Suspect]
     Dosage: 0.25 MG, 1 IN 1 DAYS, SUBCUTANEOUS
     Route: 058
     Dates: start: 20070116, end: 20070119
  4. ARDEPARIN [Concomitant]
  5. HEPARIN-FRACTION, SODIUM SALT [Concomitant]

REACTIONS (4)
  - DRUG EXPOSURE BEFORE PREGNANCY [None]
  - JUGULAR VEIN THROMBOSIS [None]
  - METRORRHAGIA [None]
  - TWIN PREGNANCY [None]
